FAERS Safety Report 13689423 (Version 1)
Quarter: 2017Q2

REPORT INFORMATION
  Report Type: Spontaneous
  Country: US (occurrence: US)
  Receive Date: 20170625
  Receipt Date: 20170625
  Transmission Date: 20170830
  Serious: Yes (Hospitalization, Disabling, Other)
  Sender: FDA-Public Use
  Company Number: None

PATIENT
  Age: 77 Year
  Sex: Male
  Weight: 70.2 kg

DRUGS (4)
  1. LUPRON D [Concomitant]
  2. XTANDI [Suspect]
     Active Substance: ENZALUTAMIDE
     Indication: PROSTATE CANCER
     Route: 048
     Dates: start: 20161207, end: 20170522
  3. ZYTIGA [Suspect]
     Active Substance: ABIRATERONE ACETATE
     Indication: PROSTATE CANCER
     Route: 048
     Dates: start: 20161105, end: 20161112
  4. LOSARTAN. [Concomitant]
     Active Substance: LOSARTAN

REACTIONS (15)
  - Spinal fracture [None]
  - Mental impairment [None]
  - Diplopia [None]
  - Hallucination [None]
  - Metastases to bone [None]
  - Mental status changes [None]
  - Heart rate decreased [None]
  - Asthenia [None]
  - Visual impairment [None]
  - Abnormal behaviour [None]
  - Aphasia [None]
  - Balance disorder [None]
  - Bone pain [None]
  - Delirium [None]
  - Diarrhoea [None]

NARRATIVE: CASE EVENT DATE: 20170522
